FAERS Safety Report 11076047 (Version 1)
Quarter: 2015Q2

REPORT INFORMATION
  Report Type: Spontaneous
  Country: ES (occurrence: ES)
  Receive Date: 20150429
  Receipt Date: 20150429
  Transmission Date: 20150821
  Serious: Yes (Other)
  Sender: FDA-Public Use
  Company Number: ES-CIPLA LTD.-2015ES03309

PATIENT

DRUGS (14)
  1. TRASTUZUMAB [Suspect]
     Active Substance: TRASTUZUMAB
     Indication: HIV INFECTION
     Dosage: 49 CYCLES
  2. CETUXIMAB [Suspect]
     Active Substance: CETUXIMAB
     Indication: HIV INFECTION
     Dosage: 49 CYCLES
  3. FLUOROURACIL. [Suspect]
     Active Substance: FLUOROURACIL
     Indication: HIV INFECTION
     Dosage: 49 CYCLES
  4. CYCLOPHOSPHAMIDE. [Suspect]
     Active Substance: CYCLOPHOSPHAMIDE
     Indication: HIV INFECTION
     Dosage: 49 CYCLES
  5. VINCRISTINE [Suspect]
     Active Substance: VINCRISTINE
     Indication: HIV INFECTION
     Dosage: 49 CYCLES
  6. VINBLASTINE [Suspect]
     Active Substance: VINBLASTINE
     Indication: HIV INFECTION
     Dosage: 49 CYCLES
  7. GEMCITABINE [Suspect]
     Active Substance: GEMCITABINE\GEMCITABINE HYDROCHLORIDE
     Indication: HIV INFECTION
     Dosage: 49 CYCLES
  8. DOXORUBICIN [Suspect]
     Active Substance: DOXORUBICIN
     Indication: HIV INFECTION
     Dosage: 49 CYCLES
  9. RITUXIMAB [Suspect]
     Active Substance: RITUXIMAB
     Indication: HIV INFECTION
     Dosage: 49 CYCLES
  10. CARBOPLATIN. [Suspect]
     Active Substance: CARBOPLATIN
     Indication: HIV INFECTION
     Dosage: 49 CYCLES
  11. ADRIAMYCIN [Suspect]
     Active Substance: DOXORUBICIN HYDROCHLORIDE
     Indication: HIV INFECTION
     Dosage: 49 CYCLES
  12. CISPLATIN. [Suspect]
     Active Substance: CISPLATIN
     Indication: HIV INFECTION
     Dosage: 49 CYCLES
  13. RALTEGRAVIR [Suspect]
     Active Substance: RALTEGRAVIR
     Dosage: 400 MG, BID
  14. IFOSFAMIDE. [Suspect]
     Active Substance: IFOSFAMIDE
     Indication: HIV INFECTION
     Dosage: 49 CYCLES

REACTIONS (2)
  - Treatment noncompliance [Unknown]
  - Virologic failure [Unknown]
